FAERS Safety Report 11774207 (Version 4)
Quarter: 2016Q1

REPORT INFORMATION
  Report Type: Spontaneous
  Country: US (occurrence: US)
  Receive Date: 20151124
  Receipt Date: 20160216
  Transmission Date: 20160525
  Serious: Yes (Other)
  Sender: FDA-Public Use
  Company Number: ALCN2015US007335

PATIENT
  Age: 74 Year
  Sex: Female

DRUGS (3)
  1. BSS PLUS [Suspect]
     Active Substance: CALCIUM CHLORIDE\DEXTROSE\MAGNESIUM CHLORIDE\OXIGLUTATIONE\POTASSIUM CHLORIDE\SODIUM BICARBONATE\SODIUM CHLORIDE\SODIUM PHOSPHATE\SODIUM PHOSPHATE, DIBASIC
     Indication: SURGERY
     Dosage: UNK
     Route: 047
     Dates: start: 20151110, end: 20151110
  2. BETADINE [Suspect]
     Active Substance: POVIDONE-IODINE
     Indication: SURGERY
     Dosage: UNK UNK, ONCE/SINGLE
     Route: 047
     Dates: start: 20151110, end: 20151110
  3. DEXAMETHASONE SODIUM PHOSPHATE. [Suspect]
     Active Substance: DEXAMETHASONE SODIUM PHOSPHATE
     Indication: POSTOPERATIVE CARE
     Dosage: UNK
     Route: 065
     Dates: start: 20151110

REACTIONS (3)
  - Endophthalmitis [Not Recovered/Not Resolved]
  - Retinal tear [Recovered/Resolved]
  - Off label use [Recovered/Resolved]

NARRATIVE: CASE EVENT DATE: 20151112
